FAERS Safety Report 25216377 (Version 1)
Quarter: 2025Q2

REPORT INFORMATION
  Report Type: Spontaneous
  Country: US (occurrence: US)
  Receive Date: 20250418
  Receipt Date: 20250418
  Transmission Date: 20250716
  Serious: Yes (Other)
  Sender: ROCHE
  Company Number: US-ROCHE-10000254775

PATIENT
  Age: 80 Year
  Sex: Male
  Weight: 53.3 kg

DRUGS (2)
  1. ZELBORAF [Suspect]
     Active Substance: VEMURAFENIB
     Indication: Hairy cell leukaemia recurrent
     Route: 065
     Dates: start: 20250325, end: 20250325
  2. ZELBORAF [Suspect]
     Active Substance: VEMURAFENIB
     Route: 065
     Dates: start: 20250401

REACTIONS (6)
  - Off label use [Unknown]
  - Pancreatitis [Recovered/Resolved]
  - Amylase increased [Unknown]
  - Lipase increased [Unknown]
  - Blood glucose increased [Unknown]
  - Off label use [Unknown]

NARRATIVE: CASE EVENT DATE: 20250326
